FAERS Safety Report 8453649-3 (Version None)
Quarter: 2012Q2

REPORT INFORMATION
  Report Type: 
  Country: None (occurrence: None)
  Receive Date: 20120620
  Receipt Date: 20120613
  Transmission Date: 20120825
  Serious: Yes (Other)
  Sender: FDA-Public Use
  Company Number: US-UCBSA-008803

PATIENT
  Age: 20 Year
  Sex: Female

DRUGS (4)
  1. VITAMIN AND MINERAL PRENATAL SUPPLEMENT W/ FOLIC ACID CAP [Concomitant]
     Indication: PREGNANCY
     Dosage: DF IS TABLET
     Route: 048
     Dates: start: 20090801
  2. LEVETIRACETAM [Suspect]
     Indication: EPILEPSY
     Dates: start: 20091101
  3. KEPPRA XR [Suspect]
     Indication: EPILEPSY
     Dates: start: 20091201
  4. KEPPRA XR [Suspect]
     Dates: end: 20091130

REACTIONS (11)
  - VAGINAL HAEMORRHAGE [None]
  - UPPER RESPIRATORY TRACT INFECTION [None]
  - CONVULSION [None]
  - HEADACHE [None]
  - INSOMNIA [None]
  - PREGNANCY [None]
  - ABDOMINAL PAIN [None]
  - CONSTIPATION [None]
  - INAPPROPRIATE SCHEDULE OF DRUG ADMINISTRATION [None]
  - NAUSEA [None]
  - MUSCLE TWITCHING [None]
